FAERS Safety Report 8803512 (Version 1)
Quarter: 2012Q4

REPORT INFORMATION
  Report Type: 
  Country: US (occurrence: US)
  Receive Date: 20120924
  Receipt Date: 20120924
  Transmission Date: 20130627
  Serious: No
  Sender: FDA-Public Use
  Company Number: US-PFIZER INC-2012234318

PATIENT
  Age: 59 Year
  Sex: Female
  Weight: 96.6 kg

DRUGS (7)
  1. LYRICA [Suspect]
     Indication: NERVE INJURY
     Dosage: 75 mg, 2x/day
     Route: 048
  2. LYRICA [Suspect]
     Indication: CONVULSION
     Dosage: 150 mg, 2x/day
     Route: 048
  3. LYRICA [Suspect]
     Indication: FIBROMYALGIA
     Dosage: 150 mg, 1x/day
     Route: 048
  4. LEVOTHYROXINE [Concomitant]
     Dosage: UNK
  5. METFORMIN [Concomitant]
     Dosage: UNK
  6. GLIMEPIRIDE [Concomitant]
     Dosage: UNK
  7. VICTOZA [Concomitant]
     Dosage: UNK

REACTIONS (4)
  - Tinnitus [Not Recovered/Not Resolved]
  - Weight decreased [Unknown]
  - Eye disorder [Recovered/Resolved]
  - Nervousness [Not Recovered/Not Resolved]
